FAERS Safety Report 7690426-5 (Version None)
Quarter: 2011Q3

REPORT INFORMATION
  Report Type: 
  Country: None (occurrence: None)
  Receive Date: 20110817
  Receipt Date: 20110817
  Transmission Date: 20111222
  Serious: Yes (Hospitalization)
  Sender: FDA-Public Use
  Company Number: None

PATIENT
  Age: 69 Year
  Sex: Male
  Weight: 69.5 kg

DRUGS (1)
  1. LENALIDOMIDE [Suspect]
     Indication: CHRONIC LYMPHOCYTIC LEUKAEMIA
     Dosage: 5MG QD PO
     Route: 048
     Dates: start: 20101215, end: 20110803

REACTIONS (6)
  - NEOPLASM PROGRESSION [None]
  - CHRONIC LYMPHOCYTIC LEUKAEMIA [None]
  - GROIN PAIN [None]
  - CELLULITIS [None]
  - ASTHENIA [None]
  - SOFT TISSUE MASS [None]
